FAERS Safety Report 6591393-8 (Version None)
Quarter: 2010Q1

REPORT INFORMATION
  Report Type: 
  Country: None (occurrence: None)
  Receive Date: 20100219
  Receipt Date: 20100209
  Transmission Date: 20100710
  Serious: Yes (Other)
  Sender: FDA-Public Use
  Company Number: US-WATSON-2010-01640

PATIENT
  Age: 77 Year

DRUGS (1)
  1. TRIAMCINOLONE DIACETATE [Suspect]
     Indication: TENOSYNOVITIS STENOSANS
     Dosage: 0.5 ML, UNK
     Route: 035

REACTIONS (1)
  - TENDON RUPTURE [None]
